FAERS Safety Report 7212770-8 (Version None)
Quarter: 2011Q1

REPORT INFORMATION
  Report Type: 
  Country: None (occurrence: None)
  Receive Date: 20110106
  Receipt Date: 20110104
  Transmission Date: 20110831
  Serious: Yes (Life-Threatening)
  Sender: FDA-Public Use
  Company Number: FR-ROCHE-748887

PATIENT
  Age: 77 Year
  Sex: Female
  Weight: 52 kg

DRUGS (4)
  1. FLUOROURACIL [Concomitant]
     Route: 042
  2. AVASTIN [Suspect]
     Route: 042
     Dates: start: 20101007, end: 20101118
  3. FOLIC ACID [Concomitant]
     Route: 042
  4. OXALIPLATINE [Concomitant]
     Route: 042

REACTIONS (1)
  - LARGE INTESTINE PERFORATION [None]
